FAERS Safety Report 8474312-9 (Version None)
Quarter: 2012Q2

REPORT INFORMATION
  Report Type: 
  Country: None (occurrence: None)
  Receive Date: 20120628
  Receipt Date: 20120619
  Transmission Date: 20120825
  Serious: Yes (Death)
  Sender: FDA-Public Use
  Company Number: DK-ROXANE LABORATORIES, INC.-2012-EU-03222GD

PATIENT

DRUGS (1)
  1. MORPHINE [Suspect]

REACTIONS (1)
  - ACCIDENTAL OVERDOSE [None]
